FAERS Safety Report 5210504-X (Version None)
Quarter: 2007Q1

REPORT INFORMATION
  Report Type: 
  Country: None (occurrence: None)
  Receive Date: 20070116
  Receipt Date: 20070116
  Transmission Date: 20070707
  Serious: Yes (Disabling)
  Sender: FDA-Public Use
  Company Number: None

PATIENT
  Age: 74 Year
  Sex: Female
  Weight: 56.6996 kg

DRUGS (1)
  1. LEVAQUIN [Suspect]
     Indication: UPPER RESPIRATORY TRACT INFECTION
     Dosage: 1 TABLET 1X DAY MOUTH
     Route: 048
     Dates: start: 20050114, end: 20060120

REACTIONS (4)
  - ARTHRALGIA [None]
  - ARTHRITIS [None]
  - MUSCULOSKELETAL PAIN [None]
  - TENDONITIS [None]
